FAERS Safety Report 5677635-1 (Version None)
Quarter: 2008Q1

REPORT INFORMATION
  Report Type: 
  Country: None (occurrence: None)
  Receive Date: 20080324
  Receipt Date: 20080311
  Transmission Date: 20080703
  Serious: Yes (Other)
  Sender: FDA-Public Use
  Company Number: US-ELI_LILLY_AND_COMPANY-US200802003937

PATIENT
  Age: 38 Year
  Sex: Female

DRUGS (10)
  1. CYMBALTA [Suspect]
     Dosage: 1 D/F, UNK
     Dates: end: 20080216
  2. LAMICTAL [Concomitant]
  3. BUPROPION HCL [Concomitant]
  4. SEROQUEL [Concomitant]
  5. ZOCOR [Concomitant]
  6. METFORMIN [Concomitant]
  7. SYNTHROID [Concomitant]
  8. TOPROL [Concomitant]
  9. NEXIUM [Concomitant]
  10. TRICOR [Concomitant]

REACTIONS (1)
  - ANAPHYLACTIC SHOCK [None]
